FAERS Safety Report 4683151-6 (Version None)
Quarter: 2005Q2

REPORT INFORMATION
  Report Type: 
  Country: None (occurrence: None)
  Receive Date: 20050602
  Receipt Date: 20050401
  Transmission Date: 20051028
  Serious: No
  Sender: FDA-Public Use
  Company Number: USA050494690

PATIENT
  Sex: Female

DRUGS (3)
  1. CYMBALTA [Suspect]
     Indication: DEPRESSION
     Dosage: 60 MG DAY
     Dates: start: 20050101
  2. PAXIL [Concomitant]
  3. ZOLOFT [Concomitant]

REACTIONS (2)
  - PUPILS UNEQUAL [None]
  - RESTLESS LEGS SYNDROME [None]
